FAERS Safety Report 7207082-2 (Version None)
Quarter: 2011Q1

REPORT INFORMATION
  Report Type: 
  Country: None (occurrence: None)
  Receive Date: 20110103
  Receipt Date: 20101221
  Transmission Date: 20110831
  Serious: Yes (Other)
  Sender: FDA-Public Use
  Company Number: B0691711A

PATIENT
  Sex: Male
  Weight: 86 kg

DRUGS (1)
  1. AUGMENTIN [Suspect]
     Dosage: 2G PER DAY
     Route: 048
     Dates: start: 20100410, end: 20100414

REACTIONS (4)
  - BLOOD IMMUNOGLOBULIN E INCREASED [None]
  - EOSINOPHIL COUNT INCREASED [None]
  - ASTHMA [None]
  - COUGH [None]
